FAERS Safety Report 6140140-2 (Version None)
Quarter: 2009Q2

REPORT INFORMATION
  Report Type: 
  Country: None (occurrence: None)
  Receive Date: 20090401
  Receipt Date: 20090327
  Transmission Date: 20091009
  Serious: Yes (Other)
  Sender: FDA-Public Use
  Company Number: DE-BRISTOL-MYERS SQUIBB COMPANY-14559330

PATIENT
  Sex: Female

DRUGS (3)
  1. ORENCIA [Suspect]
     Indication: RHEUMATOID ARTHRITIS
     Dosage: TOTAL NUMBER OF CYCLES-10
     Route: 042
     Dates: start: 20080401
  2. AZATHIOPRINE [Concomitant]
  3. CORTICOSTEROID [Concomitant]
     Dosage: 1 DOSAGE FORM = 40-80MG FOR WEEKS ALREADY

REACTIONS (1)
  - COLITIS ULCERATIVE [None]
